FAERS Safety Report 5525907-3 (Version None)
Quarter: 2007Q4

REPORT INFORMATION
  Report Type: 
  Country: None (occurrence: None)
  Receive Date: 20071126
  Receipt Date: 20071114
  Transmission Date: 20080405
  Serious: Yes (Other)
  Sender: FDA-Public Use
  Company Number: NO-PFIZER INC-2007095805

PATIENT
  Age: 31 Year
  Sex: Female

DRUGS (4)
  1. LYRICA [Suspect]
     Indication: HEADACHE
     Dates: start: 20070831, end: 20071021
  2. MAXALT [Concomitant]
     Indication: MIGRAINE
     Dosage: TEXT:WHEN MIGRAINE ATTACK
  3. MARVELON [Concomitant]
     Indication: CONTRACEPTION
  4. CIPRALEX [Concomitant]
     Indication: DEPRESSION
     Route: 048

REACTIONS (10)
  - ANXIETY [None]
  - DIZZINESS [None]
  - EUPHORIC MOOD [None]
  - INCREASED APPETITE [None]
  - INDIFFERENCE [None]
  - MEMORY IMPAIRMENT [None]
  - PARAESTHESIA [None]
  - SEDATION [None]
  - SPEECH DISORDER [None]
  - TREMOR [None]
